FAERS Safety Report 20529025 (Version 1)
Quarter: 2022Q1

REPORT INFORMATION
  Report Type: Spontaneous
  Country: US (occurrence: US)
  Receive Date: 20220228
  Receipt Date: 20220228
  Transmission Date: 20220423
  Serious: No
  Sender: FDA-Public Use
  Company Number: US-PFIZER INC-202101698379

PATIENT
  Age: 28 Year
  Sex: Female

DRUGS (5)
  1. XELJANZ XR [Suspect]
     Active Substance: TOFACITINIB CITRATE
     Indication: Colitis ulcerative
     Dosage: 22 MG, DAILY [TAKE 1 TABLET DAILY AFTER TAKING 8 WEEKS OF THE 22 MG DAILY]
  2. XELJANZ XR [Suspect]
     Active Substance: TOFACITINIB CITRATE
     Dosage: 11 MG [TAKE 1 TABLET DAILY AFTER TAKING 8 WEEKS OF THE 22 MG DAILY]
     Route: 048
     Dates: start: 20210825
  3. FLUAD QUAD [Concomitant]
     Dosage: UNK
  4. IRON [Concomitant]
     Active Substance: IRON
     Dosage: UNK
  5. VICKS [CAMPHOR;CINEOLE;MENTHOL;OXYMETAZOLINE HYDROCHLORIDE] [Concomitant]
     Dosage: UNK

REACTIONS (1)
  - Nasopharyngitis [Unknown]
